FAERS Safety Report 8328737-2 (Version None)
Quarter: 2012Q2

REPORT INFORMATION
  Report Type: 
  Country: None (occurrence: None)
  Receive Date: 20120502
  Receipt Date: 20120425
  Transmission Date: 20120825
  Serious: Yes (Life-Threatening, Hospitalization)
  Sender: FDA-Public Use
  Company Number: CA-BRISTOL-MYERS SQUIBB COMPANY-16550618

PATIENT
  Age: 71 Year
  Sex: Female

DRUGS (11)
  1. ACIDOPHILUS [Concomitant]
  2. VITAMIN D [Concomitant]
  3. OXYBUTYNIN [Concomitant]
  4. METHOTREXATE [Suspect]
     Dosage: INJECTION
  5. GABAPENTIN [Concomitant]
  6. PREDNISONE TAB [Concomitant]
  7. ORENCIA [Suspect]
     Indication: RHEUMATOID ARTHRITIS
     Route: 042
     Dates: start: 20100729
  8. VITAMIN B-50 [Concomitant]
  9. FOLIC ACID [Concomitant]
  10. SYMBICORT [Concomitant]
  11. OXYCONTIN [Concomitant]
     Dosage: 1DF=5 TABS

REACTIONS (2)
  - CHOLELITHIASIS [None]
  - INFECTION [None]
